FAERS Safety Report 25134341 (Version 1)
Quarter: 2025Q1

REPORT INFORMATION
  Report Type: Report from Study
  Country: CZ (occurrence: CZ)
  Receive Date: 20250328
  Receipt Date: 20250328
  Transmission Date: 20250409
  Serious: Yes (Other)
  Sender: RANBAXY
  Company Number: CZ-SUN PHARMACEUTICAL INDUSTRIES LTD-2025R1-501249

PATIENT
  Weight: 2.27 kg

DRUGS (3)
  1. MESALAMINE [Suspect]
     Active Substance: MESALAMINE
     Indication: Colitis ulcerative
     Dosage: 3 GRAM, DAILY
     Route: 064
  2. TOFACITINIB [Suspect]
     Active Substance: TOFACITINIB
     Indication: Colitis ulcerative
     Dosage: 10 MILLIGRAM, BID
     Route: 064
  3. VEDOLIZUMAB [Suspect]
     Active Substance: VEDOLIZUMAB
     Indication: Colitis ulcerative
     Route: 064

REACTIONS (2)
  - Foetal exposure during pregnancy [Unknown]
  - Low birth weight baby [Unknown]
